FAERS Safety Report 4316198-X (Version None)
Quarter: 2004Q1

REPORT INFORMATION
  Report Type: 
  Country: None (occurrence: None)
  Receive Date: 20040312
  Receipt Date: 20040305
  Transmission Date: 20041129
  Serious: Yes (Other)
  Sender: FDA-Public Use
  Company Number: US-GLAXOSMITHKLINE-A0502252A

PATIENT
  Age: 25 Year
  Sex: Female

DRUGS (3)
  1. IMITREX [Suspect]
     Indication: MIGRAINE
     Dosage: 100MG PER DAY
     Route: 048
  2. IMITREX [Suspect]
     Route: 058
  3. PRENATAL VITAMINS [Concomitant]

REACTIONS (1)
  - ABORTION SPONTANEOUS [None]
